FAERS Safety Report 23273477 (Version 1)
Quarter: 2023Q4

REPORT INFORMATION
  Report Type: Spontaneous
  Country: CA (occurrence: CA)
  Receive Date: 20231207
  Receipt Date: 20231207
  Transmission Date: 20240109
  Serious: Yes (Other)
  Sender: FDA-Public Use
  Company Number: CA-FreseniusKabi-FK202319874

PATIENT
  Sex: Male

DRUGS (3)
  1. FENTANYL [Suspect]
     Active Substance: FENTANYL\FENTANYL CITRATE
     Indication: Product used for unknown indication
     Dosage: ROA: UNKNOWN
  2. ACETAMINOPHEN\OXYCODONE HYDROCHLORIDE [Suspect]
     Active Substance: ACETAMINOPHEN\OXYCODONE HYDROCHLORIDE
     Indication: Product used for unknown indication
     Dosage: ROA: ORAL?FORM: TABLET
  3. OXYCONTIN [Suspect]
     Active Substance: OXYCODONE HYDROCHLORIDE
     Indication: Product used for unknown indication
     Dosage: ROA: ORAL?FORM: TABLET (EXTENDED-RELEASE)

REACTIONS (7)
  - Confusional state [Unknown]
  - Constipation [Unknown]
  - Drug dependence [Unknown]
  - Gastrooesophageal reflux disease [Unknown]
  - Learning disability [Unknown]
  - Loss of employment [Unknown]
  - Disturbance in attention [Unknown]
